FAERS Safety Report 10370618 (Version 1)
Quarter: 2014Q3

REPORT INFORMATION
  Report Type: Spontaneous
  Country: US (occurrence: US)
  Receive Date: 20140808
  Receipt Date: 20140808
  Transmission Date: 20150326
  Serious: Yes (Hospitalization, Other)
  Sender: FDA-Public Use
  Company Number: US-BAYER-2014-116673

PATIENT
  Age: 44 Year
  Sex: Female
  Weight: 65.76 kg

DRUGS (4)
  1. DEMEROL [Concomitant]
     Active Substance: MEPERIDINE HYDROCHLORIDE
  2. NIFEREX [Concomitant]
     Active Substance: IRON\POLYSACCHARIDES
  3. YAZ [Suspect]
     Active Substance: DROSPIRENONE\ETHINYL ESTRADIOL
  4. ADVIL [Concomitant]
     Active Substance: IBUPROFEN

REACTIONS (2)
  - Portal vein thrombosis [Not Recovered/Not Resolved]
  - Cholelithiasis [None]

NARRATIVE: CASE EVENT DATE: 200812
